FAERS Safety Report 7398787-1 (Version None)
Quarter: 2011Q2

REPORT INFORMATION
  Report Type: 
  Country: None (occurrence: None)
  Receive Date: 20110401
  Receipt Date: 20110401
  Transmission Date: 20111010
  Serious: Yes (Hospitalization)
  Sender: FDA-Public Use
  Company Number: None

PATIENT
  Sex: Male

DRUGS (2)
  1. STEROIDS [Concomitant]
  2. TYSABRI [Suspect]
     Indication: MULTIPLE SCLEROSIS
     Dosage: 300 MG ONCE MONTHLY IV
     Route: 042
     Dates: start: 20091130, end: 20100331

REACTIONS (2)
  - IMPAIRED DRIVING ABILITY [None]
  - UNEVALUABLE EVENT [None]
